FAERS Safety Report 18816529 (Version 1)
Quarter: 2021Q1

REPORT INFORMATION
  Report Type: Spontaneous
  Country: US (occurrence: US)
  Receive Date: 20210201
  Receipt Date: 20210201
  Transmission Date: 20210419
  Serious: Yes (Other)
  Sender: FDA-Public Use
  Company Number: US-MYLANLABS-2021M1004979

PATIENT
  Age: 19 Year
  Sex: Female

DRUGS (1)
  1. MIRTAZAPINE. [Suspect]
     Active Substance: MIRTAZAPINE
     Indication: ABNORMAL BEHAVIOUR
     Dosage: 15 MILLIGRAM
     Route: 065

REACTIONS (2)
  - Temporal lobe epilepsy [Recovered/Resolved]
  - Hallucination, visual [Recovered/Resolved]
